FAERS Safety Report 16937877 (Version 1)
Quarter: 2019Q4

REPORT INFORMATION
  Report Type: Report from Study
  Country: None (occurrence: DE)
  Receive Date: 20191018
  Receipt Date: 20191018
  Transmission Date: 20200122
  Serious: Yes (Hospitalization)
  Sender: FDA-Public Use
  Company Number: DE-ABBVIE-19P-062-2963115-00

PATIENT
  Age: 77 Year
  Sex: Male
  Weight: 80 kg

DRUGS (7)
  1. BISOPROLOL [Concomitant]
     Active Substance: BISOPROLOL
     Indication: HYPERTENSION
     Route: 048
     Dates: start: 201701
  2. EXJADE [Concomitant]
     Active Substance: DEFERASIROX
     Indication: PROPHYLAXIS
     Route: 048
     Dates: start: 2015
  3. AXIGRAN [Concomitant]
     Indication: NAUSEA
     Route: 058
     Dates: start: 201712
  4. COTRIM [Concomitant]
     Active Substance: SULFAMETHOXAZOLE\TRIMETHOPRIM
     Indication: ANTIBIOTIC PROPHYLAXIS
     Route: 048
     Dates: start: 20190416
  5. FOLSAN [Concomitant]
     Active Substance: FOLIC ACID
     Indication: PROPHYLAXIS
     Route: 048
  6. VENETOCLAX. [Suspect]
     Active Substance: VENETOCLAX
     Indication: MYELODYSPLASTIC SYNDROME
     Route: 048
     Dates: start: 20190506
  7. DELIX [Concomitant]
     Indication: HYPERTENSION
     Route: 048
     Dates: start: 20190513

REACTIONS (1)
  - Respiratory tract infection [Recovered/Resolved]

NARRATIVE: CASE EVENT DATE: 20191011
